FAERS Safety Report 5327145-6 (Version None)
Quarter: 2007Q2

REPORT INFORMATION
  Report Type: 
  Country: None (occurrence: None)
  Receive Date: 20070517
  Receipt Date: 20070510
  Transmission Date: 20071010
  Serious: Yes (Other)
  Sender: FDA-Public Use
  Company Number: PHNU2007DE01779

PATIENT
  Sex: Female

DRUGS (1)
  1. KARIL [Suspect]
     Indication: OSTEOPOROSIS
     Route: 045

REACTIONS (4)
  - CALCINOSIS [None]
  - CYST [None]
  - METAPLASIA [None]
  - RHINORRHOEA [None]
